FAERS Safety Report 5018816-X (Version None)
Quarter: 2006Q2

REPORT INFORMATION
  Report Type: 
  Country: None (occurrence: None)
  Receive Date: 20060606
  Receipt Date: 20060602
  Transmission Date: 20061013
  Serious: Yes (Hospitalization)
  Sender: FDA-Public Use
  Company Number: US-JNJFOC-20060600733

PATIENT
  Sex: Female
  Weight: 68.04 kg

DRUGS (9)
  1. FLEXERIL [Suspect]
     Indication: MUSCLE SPASMS
     Route: 048
  2. MULTI-VITAMIN [Concomitant]
  3. MULTI-VITAMIN [Concomitant]
  4. MULTI-VITAMIN [Concomitant]
  5. MULTI-VITAMIN [Concomitant]
  6. MULTI-VITAMIN [Concomitant]
  7. MULTI-VITAMIN [Concomitant]
  8. MULTI-VITAMIN [Concomitant]
  9. MULTI-VITAMIN [Concomitant]

REACTIONS (10)
  - AMNESIA [None]
  - BLOOD PRESSURE INCREASED [None]
  - CONFUSIONAL STATE [None]
  - DYSPNOEA [None]
  - HEART RATE INCREASED [None]
  - MUSCLE DISORDER [None]
  - PLATELET COUNT DECREASED [None]
  - RED BLOOD CELL COUNT DECREASED [None]
  - SPLENOMEGALY [None]
  - WHITE BLOOD CELL COUNT DECREASED [None]
